FAERS Safety Report 7442673-5 (Version None)
Quarter: 2011Q2

REPORT INFORMATION
  Report Type: 
  Country: None (occurrence: None)
  Receive Date: 20110428
  Receipt Date: 20110223
  Transmission Date: 20111010
  Serious: Yes (Other)
  Sender: FDA-Public Use
  Company Number: US-JNJFOC-2011001700

PATIENT
  Sex: Female
  Weight: 66.67 kg

DRUGS (9)
  1. WARFARIN [Concomitant]
     Indication: ANTICOAGULANT THERAPY
     Dosage: DAILY DOSE TEXT: 2MG AT AN UNKNOWN FREQUENCY
     Route: 065
  2. AVELOX [Concomitant]
  3. DIGOXIN [Concomitant]
  4. FUROSEMIDE [Concomitant]
  5. DILTIAZEM [Concomitant]
  6. NICOTINE GUM [Suspect]
     Indication: SMOKING CESSATION THERAPY
     Route: 048
  7. POTASSIUM CHLORIDE [Concomitant]
  8. CLONAZEPAM [Concomitant]
  9. NICOTROL [Suspect]
     Indication: SMOKING CESSATION THERAPY
     Route: 055

REACTIONS (4)
  - DEVICE FAILURE [None]
  - MALAISE [None]
  - TOOTH LOSS [None]
  - FLUID RETENTION [None]
